FAERS Safety Report 12121315 (Version 2)
Quarter: 2016Q1

REPORT INFORMATION
  Report Type: Spontaneous
  Country: US (occurrence: US)
  Receive Date: 20160226
  Receipt Date: 20160304
  Transmission Date: 20160526
  Serious: Yes (Life-Threatening, Hospitalization, Other)
  Sender: FDA-Public Use
  Company Number: US-BAYER-2016-031926

PATIENT
  Age: 75 Year
  Sex: Male
  Weight: 126.3 kg

DRUGS (5)
  1. LOSARTAN. [Concomitant]
     Active Substance: LOSARTAN
     Dosage: UNK
     Dates: start: 201201, end: 20151220
  2. SPIRIVA [Concomitant]
     Active Substance: TIOTROPIUM BROMIDE MONOHYDRATE
  3. BAYER GENUINE ASPIRIN [Suspect]
     Active Substance: ASPIRIN
     Indication: CARDIOVASCULAR EVENT PROPHYLAXIS
     Dosage: 1 DF, QD
     Route: 048
     Dates: start: 20040101, end: 20160111
  4. BAYER GENUINE ASPIRIN [Suspect]
     Active Substance: ASPIRIN
     Indication: CARDIOVASCULAR EVENT PROPHYLAXIS
     Dosage: 1 DF, QD
     Route: 048
     Dates: start: 20160118, end: 20160120
  5. ALEVE [Suspect]
     Active Substance: NAPROXEN SODIUM
     Dosage: UNK
     Route: 048

REACTIONS (22)
  - Lip swelling [Recovered/Resolved]
  - Swollen tongue [None]
  - Chronic obstructive pulmonary disease [Not Recovered/Not Resolved]
  - Angioedema [Recovered/Resolved]
  - Swollen tongue [Recovered/Resolved]
  - Myocardial infarction [Recovered/Resolved]
  - Product use issue [None]
  - Pharyngeal oedema [Recovered/Resolved]
  - Swelling face [Recovered/Resolved]
  - Vomiting [Recovered/Resolved]
  - Angioedema [None]
  - Gastrooesophageal reflux disease [Not Recovered/Not Resolved]
  - Spinal osteoarthritis [None]
  - Prostate cancer [None]
  - Percutaneous coronary intervention [Recovered/Resolved]
  - Pharyngeal oedema [None]
  - Oedema peripheral [Not Recovered/Not Resolved]
  - Intervertebral disc degeneration [Not Recovered/Not Resolved]
  - Lip swelling [None]
  - Angioedema [Recovered/Resolved]
  - Wheezing [Recovered/Resolved]
  - Wheezing [None]

NARRATIVE: CASE EVENT DATE: 200401
